FAERS Safety Report 9701371 (Version 2)
Quarter: 2013Q4

REPORT INFORMATION
  Report Type: Spontaneous
  Country: US (occurrence: US)
  Receive Date: 20131121
  Receipt Date: 20131121
  Transmission Date: 20140711
  Serious: No
  Sender: FDA-Public Use
  Company Number: US-GILEAD-2008-0016485

PATIENT
  Age: 71 Year
  Sex: Male

DRUGS (7)
  1. LETAIRIS [Suspect]
     Indication: PULMONARY ARTERIAL HYPERTENSION
     Dates: start: 20080108
  2. REVATIO [Concomitant]
     Route: 048
  3. COUMADIN [Concomitant]
  4. LASIX [Concomitant]
  5. AVALIDE [Concomitant]
  6. TRICOR [Concomitant]
  7. K-DUR [Concomitant]

REACTIONS (1)
  - Rash [None]
